FAERS Safety Report 23772207 (Version 1)
Quarter: 2024Q2

REPORT INFORMATION
  Report Type: Spontaneous
  Country: HR (occurrence: HR)
  Receive Date: 20240423
  Receipt Date: 20240423
  Transmission Date: 20240715
  Serious: Yes (Other)
  Sender: FDA-Public Use
  Company Number: HR-ASTELLAS-2024US011711

PATIENT
  Sex: Female

DRUGS (2)
  1. GILTERITINIB [Suspect]
     Active Substance: GILTERITINIB
     Indication: Product used for unknown indication
     Route: 065
  2. GILTERITINIB [Suspect]
     Active Substance: GILTERITINIB
     Dosage: 200 MG, ONCE DAILY (DOSE INCREASED)
     Route: 065

REACTIONS (4)
  - Blast cell count increased [Unknown]
  - Blood lactate dehydrogenase increased [Unknown]
  - Transaminases increased [Unknown]
  - Drug ineffective [Unknown]
